FAERS Safety Report 21238134 (Version 2)
Quarter: 2022Q4

REPORT INFORMATION
  Report Type: Spontaneous
  Country: US (occurrence: US)
  Receive Date: 20220822
  Receipt Date: 20221101
  Transmission Date: 20230113
  Serious: No
  Sender: FDA-Public Use
  Company Number: US-TEVA-2022-US-2065503

PATIENT
  Age: 69 Year
  Sex: Female

DRUGS (1)
  1. QVAR REDIHALER [Suspect]
     Active Substance: BECLOMETHASONE DIPROPIONATE
     Indication: Product used for unknown indication
     Route: 055

REACTIONS (7)
  - Throat irritation [Unknown]
  - Product residue present [Unknown]
  - Device delivery system issue [Unknown]
  - Product delivery mechanism issue [Unknown]
  - Dysphonia [Unknown]
  - Speech disorder [Unknown]
  - Oropharyngeal pain [Unknown]
